FAERS Safety Report 19540215 (Version 1)
Quarter: 2021Q3

REPORT INFORMATION
  Report Type: Spontaneous
  Country: JP (occurrence: JP)
  Receive Date: 20210714
  Receipt Date: 20210714
  Transmission Date: 20211014
  Serious: Yes (Hospitalization)
  Sender: FDA-Public Use
  Company Number: JP-AMGEN-JPNSP2021104860

PATIENT
  Age: 58 Year
  Sex: Female

DRUGS (3)
  1. CYCLOPHOSPHAMIDE. [Concomitant]
     Active Substance: CYCLOPHOSPHAMIDE
     Indication: HORMONE RECEPTOR POSITIVE BREAST CANCER
     Dosage: 500 MG/M2
     Route: 041
  2. EPIRUBICIN HYDROCHLORIDE. [Concomitant]
     Active Substance: EPIRUBICIN HYDROCHLORIDE
     Indication: HORMONE RECEPTOR POSITIVE BREAST CANCER
     Dosage: 100 MG/M2
     Route: 041
  3. G?LASTA [Suspect]
     Active Substance: PEGFILGRASTIM
     Indication: COLONY STIMULATING FACTOR THERAPY
     Dosage: UNK (IN THE 3RD COURSE)
     Route: 058

REACTIONS (1)
  - Lung disorder [Recovering/Resolving]
